FAERS Safety Report 5115351-5 (Version None)
Quarter: 2006Q3

REPORT INFORMATION
  Report Type: 
  Country: None (occurrence: None)
  Receive Date: 20060922
  Receipt Date: 20060907
  Transmission Date: 20061208
  Serious: Yes (Death, Other)
  Sender: FDA-Public Use
  Company Number: GXKR2006CH05589

PATIENT
  Age: 74 Year
  Sex: Female

DRUGS (4)
  1. METHOTREXATE [Suspect]
     Indication: RHEUMATOID ARTHRITIS
     Dosage: SEE IMAGE, SUBCUTANEOUS
     Route: 058
     Dates: start: 20030101
  2. PREDNISONE [Suspect]
     Indication: RHEUMATOID ARTHRITIS
     Dosage: 10 MG, QD
  3. NSAID'S (NO INGREDIENTS/SUBSTANCES) [Suspect]
     Indication: RHEUMATOID ARTHRITIS
  4. IMUREK (AZATHIOPRINE SODIUM) [Concomitant]

REACTIONS (10)
  - ASPERGILLOSIS [None]
  - CANDIDIASIS [None]
  - CARDIOVASCULAR INSUFFICIENCY [None]
  - CONDITION AGGRAVATED [None]
  - ENTEROCOCCAL INFECTION [None]
  - HEPATIC ENZYME INCREASED [None]
  - PNEUMOCYSTIS JIROVECI PNEUMONIA [None]
  - POLYARTHRITIS [None]
  - RESPIRATORY FAILURE [None]
  - SEPSIS [None]
